FAERS Safety Report 18162892 (Version 1)
Quarter: 2020Q3

REPORT INFORMATION
  Report Type: Spontaneous
  Country: US (occurrence: US)
  Receive Date: 20200818
  Receipt Date: 20200818
  Transmission Date: 20201103
  Serious: No
  Sender: FDA-Public Use
  Company Number: US-GALEN SPECIALTY PHARMA US LLC-AE-2019-0709

PATIENT
  Sex: Female

DRUGS (1)
  1. SYNERA [Suspect]
     Active Substance: LIDOCAINE\TETRACAINE
     Dosage: ONE PATCH
     Route: 061

REACTIONS (4)
  - Application site erythema [Unknown]
  - Pain [Unknown]
  - Rash papular [Unknown]
  - Administration site pain [Unknown]
